APPROVED DRUG PRODUCT: DYNABAC
Active Ingredient: DIRITHROMYCIN
Strength: 250MG
Dosage Form/Route: TABLET, DELAYED RELEASE;ORAL
Application: N050678 | Product #001
Applicant: LILLY RESEARCH LABORATORIES
Approved: Jun 19, 1995 | RLD: No | RS: No | Type: DISCN